FAERS Safety Report 10618491 (Version 1)
Quarter: 2014Q4

REPORT INFORMATION
  Report Type: Spontaneous
  Country: US (occurrence: US)
  Receive Date: 20141202
  Receipt Date: 20141202
  Transmission Date: 20150529
  Serious: No
  Sender: FDA-Public Use
  Company Number: US-TEVA-458022USA

PATIENT
  Sex: Female

DRUGS (2)
  1. PEPCID AC [Concomitant]
     Active Substance: FAMOTIDINE
     Dates: start: 20131231
  2. AZITHROMYCIN [Suspect]
     Active Substance: AZITHROMYCIN ANHYDROUS
     Indication: LARYNGITIS
     Dates: start: 20131230, end: 20140115

REACTIONS (1)
  - Blood urine present [Recovering/Resolving]

NARRATIVE: CASE EVENT DATE: 20131231
